FAERS Safety Report 4778830-6 (Version None)
Quarter: 2005Q3

REPORT INFORMATION
  Report Type: 
  Country: None (occurrence: None)
  Receive Date: 20050923
  Receipt Date: 20050913
  Transmission Date: 20060218
  Serious: Yes (Other)
  Sender: FDA-Public Use
  Company Number: 2005128864

PATIENT
  Sex: 0

DRUGS (2)
  1. CABARGOLINE(CABARGOLINE) [Suspect]
     Indication: PARKINSON'S DISEASE
     Dosage: UNKNOWN (PLACENTAL)
  2. CO-CARELDOPA (CARBIDOPA, LEVODOPA) [Suspect]
     Indication: PARKINSON'S DISEASE
     Dosage: UNKNOWN
     Route: 065

REACTIONS (4)
  - CAESAREAN SECTION [None]
  - DRUG EXPOSURE DURING PREGNANCY [None]
  - PREGNANCY [None]
  - PREMATURE SEPARATION OF PLACENTA [None]
